FAERS Safety Report 16824370 (Version 1)
Quarter: 2019Q3

REPORT INFORMATION
  Report Type: Spontaneous
  Country: DE (occurrence: DE)
  Receive Date: 20190918
  Receipt Date: 20190918
  Transmission Date: 20191005
  Serious: Yes (Death, Other)
  Sender: FDA-Public Use
  Company Number: DE-GILEAD-2019-0428823

PATIENT
  Age: 49 Year
  Sex: Female

DRUGS (7)
  1. BENDAMUSTINE [Concomitant]
     Active Substance: BENDAMUSTINE
     Indication: DIFFUSE LARGE B-CELL LYMPHOMA
     Dosage: 1 DOSAGE FORM, ONCE
     Dates: start: 201907, end: 201907
  2. RITUXIMAB. [Concomitant]
     Active Substance: RITUXIMAB
     Indication: DIFFUSE LARGE B-CELL LYMPHOMA
     Dosage: 1 DOSAGE FORM, ONCE
     Dates: start: 201907, end: 201907
  3. RITUXIMAB. [Concomitant]
     Active Substance: RITUXIMAB
     Dosage: 1 DOSAGE FORM, ONCE
     Dates: start: 201908, end: 201908
  4. AXICABTAGENE CILOLEUCEL [Suspect]
     Active Substance: AXICABTAGENE CILOLEUCEL
     Indication: DIFFUSE LARGE B-CELL LYMPHOMA
     Dosage: UNK
     Route: 042
     Dates: start: 201908, end: 201908
  5. POLATUZUMAB VEDOTIN. [Concomitant]
     Active Substance: POLATUZUMAB VEDOTIN
     Indication: DIFFUSE LARGE B-CELL LYMPHOMA
     Dosage: 1 DOSAGE FORM, ONCE
     Dates: start: 201907, end: 201907
  6. POLATUZUMAB VEDOTIN. [Concomitant]
     Active Substance: POLATUZUMAB VEDOTIN
     Dosage: 1 DOSAGE FORM, ONCE
     Dates: start: 201908, end: 201908
  7. BENDAMUSTINE [Concomitant]
     Active Substance: BENDAMUSTINE
     Dosage: 1 DOSAGE FORM, ONCE
     Dates: start: 201908, end: 201908

REACTIONS (6)
  - Pulmonary haemorrhage [Fatal]
  - Aspergillus infection [Unknown]
  - Cytokine release syndrome [Unknown]
  - Cytopenia [Unknown]
  - Stenotrophomonas infection [Unknown]
  - Neurotoxicity [Unknown]

NARRATIVE: CASE EVENT DATE: 2019
